FAERS Safety Report 9169609 (Version 1)
Quarter: 2013Q1

REPORT INFORMATION
  Report Type: Spontaneous
  Country: CA (occurrence: CA)
  Receive Date: 20130318
  Receipt Date: 20130318
  Transmission Date: 20140127
  Serious: Yes (Hospitalization, Other)
  Sender: FDA-Public Use
  Company Number: CA-BAYER-2013-030210

PATIENT
  Age: 17 Year
  Sex: Female

DRUGS (3)
  1. YASMIN [Suspect]
  2. NEXIUM [Concomitant]
  3. MONTELUKAST [Concomitant]

REACTIONS (4)
  - Microlithiasis [None]
  - Pancreatitis acute [None]
  - Pancreatitis relapsing [None]
  - Cholelithiasis [None]
